FAERS Safety Report 7880615-9 (Version None)
Quarter: 2011Q4

REPORT INFORMATION
  Report Type: 
  Country: None (occurrence: None)
  Receive Date: 20111101
  Receipt Date: 20111021
  Transmission Date: 20120403
  Serious: Yes (Other)
  Sender: FDA-Public Use
  Company Number: FR-ROCHE-1008055

PATIENT
  Sex: Female
  Weight: 64 kg

DRUGS (5)
  1. FORADIL [Concomitant]
  2. HYPERIUM [Concomitant]
  3. IRBESARTAN AND HYDROCHLOROTHIAZIDE [Concomitant]
  4. FLUTICASONE PROPIONATE [Concomitant]
  5. XOLAIR [Suspect]
     Indication: ASTHMA
     Route: 065
     Dates: start: 20110504, end: 20110708

REACTIONS (3)
  - ARTHRALGIA [None]
  - SENSATION OF HEAVINESS [None]
  - MUSCLE SPASMS [None]
